FAERS Safety Report 9085016 (Version 1)
Quarter: 2013Q1

REPORT INFORMATION
  Report Type: Report from Study
  Country: US (occurrence: US)
  Receive Date: 20130131
  Receipt Date: 20130131
  Transmission Date: 20140127
  Serious: No
  Sender: FDA-Public Use
  Company Number: US-ABBOTT-12P-163-0995655-00

PATIENT
  Age: 41 Year
  Sex: Female

DRUGS (12)
  1. HUMIRA [Suspect]
     Indication: CROHN^S DISEASE
     Dates: start: 20121004, end: 20121004
  2. HUMIRA [Suspect]
     Route: 058
  3. PENTASA [Concomitant]
     Indication: PRODUCT USED FOR UNKNOWN INDICATION
     Dosage: 500 MG, 4 TABS TWICE DAILY
  4. 6MP [Concomitant]
     Indication: PRODUCT USED FOR UNKNOWN INDICATION
     Dosage: 25 MG, ALTERNATING EVERY OTHER DAY WITH 12.5 MG
  5. CALCIUM WITH VITAMIN D [Concomitant]
     Indication: PRODUCT USED FOR UNKNOWN INDICATION
     Dosage: 600 MG DAILY
  6. FOLIC ACID [Concomitant]
     Indication: PRODUCT USED FOR UNKNOWN INDICATION
     Dosage: 1 MG DAILY
  7. LORATADINE [Concomitant]
     Indication: PRODUCT USED FOR UNKNOWN INDICATION
     Dosage: 10 MG DAILY
  8. NEXIUM [Concomitant]
     Indication: PRODUCT USED FOR UNKNOWN INDICATION
     Dosage: 40 MG DAILY
  9. PRISTIQ [Concomitant]
     Indication: PRODUCT USED FOR UNKNOWN INDICATION
     Dosage: 50 MG DAILY
  10. TOPIRAMATE [Concomitant]
     Indication: PRODUCT USED FOR UNKNOWN INDICATION
     Dosage: 100 MG DAILY
  11. AMITRIPTYLINE [Concomitant]
     Indication: PRODUCT USED FOR UNKNOWN INDICATION
  12. CARVEDILOL [Concomitant]
     Indication: PRODUCT USED FOR UNKNOWN INDICATION
     Dosage: 3.125 MG DAILY

REACTIONS (2)
  - Injection site pain [Recovered/Resolved]
  - Injection site pain [Recovered/Resolved]
